FAERS Safety Report 15526376 (Version 4)
Quarter: 2018Q4

REPORT INFORMATION
  Report Type: Spontaneous
  Country: US (occurrence: US)
  Receive Date: 20181018
  Receipt Date: 20181227
  Transmission Date: 20190205
  Serious: Yes (Other)
  Sender: FDA-Public Use
  Company Number: US-ASTELLAS-2018US041690

PATIENT
  Age: 65 Year
  Sex: Male

DRUGS (1)
  1. XTANDI [Suspect]
     Active Substance: ENZALUTAMIDE
     Indication: PROSTATE CANCER
     Route: 048
     Dates: start: 20180830

REACTIONS (10)
  - Adrenal disorder [Not Recovered/Not Resolved]
  - Lip erythema [Unknown]
  - Pollakiuria [Unknown]
  - Cerebral disorder [Not Recovered/Not Resolved]
  - Sleep disorder [Not Recovered/Not Resolved]
  - Fatigue [Not Recovered/Not Resolved]
  - Oral herpes [Unknown]
  - Sluggishness [Unknown]
  - Asthenia [Unknown]
  - Testicular atrophy [Unknown]

NARRATIVE: CASE EVENT DATE: 201809
